FAERS Safety Report 7650705-4 (Version None)
Quarter: 2011Q3

REPORT INFORMATION
  Report Type: 
  Country: None (occurrence: None)
  Receive Date: 20110802
  Receipt Date: 20110728
  Transmission Date: 20111222
  Serious: Yes (Hospitalization)
  Sender: FDA-Public Use
  Company Number: US-B.I. PHARMACEUTICALS,INC./RIDGEFIELD-2006-BP-05725BP

PATIENT
  Sex: Female

DRUGS (10)
  1. ASMANEX TWISTHALER [Concomitant]
  2. FOSAMAX [Concomitant]
     Indication: OSTEOPOROSIS
  3. XOPENEX [Concomitant]
     Indication: ASTHMA
  4. COMBIVENT [Suspect]
     Indication: CHRONIC OBSTRUCTIVE PULMONARY DISEASE
     Dosage: 8 PUF
     Route: 055
     Dates: start: 20030101
  5. COMBIVENT [Suspect]
     Indication: ASTHMA
  6. FLOVENT [Concomitant]
     Indication: CHRONIC OBSTRUCTIVE PULMONARY DISEASE
  7. SINGULAIR [Concomitant]
     Indication: SEASONAL ALLERGY
  8. SYMBICORT [Concomitant]
     Indication: CHRONIC OBSTRUCTIVE PULMONARY DISEASE
  9. FORADIL [Concomitant]
  10. PREDNISONE [Concomitant]

REACTIONS (13)
  - DRUG EFFECT DECREASED [None]
  - EXERCISE TOLERANCE DECREASED [None]
  - LUNG DISORDER [None]
  - ORAL PAIN [None]
  - RESPIRATORY TRACT IRRITATION [None]
  - PULMONARY CONGESTION [None]
  - PULMONARY FUNCTION TEST DECREASED [None]
  - INFLAMMATION [None]
  - DYSPNOEA [None]
  - PNEUMONIA [None]
  - DRUG INEFFECTIVE [None]
  - OROPHARYNGEAL PAIN [None]
  - BURNING SENSATION [None]
